FAERS Safety Report 10982931 (Version 1)
Quarter: 2015Q2

REPORT INFORMATION
  Report Type: Spontaneous
  Country: US (occurrence: None)
  Receive Date: 20150401
  Receipt Date: 20150401
  Transmission Date: 20150821
  Serious: Yes (Life-Threatening, Hospitalization)
  Sender: FDA-Public Use
  Company Number: NSR_02014_2015

PATIENT
  Age: 44 Year
  Sex: Male

DRUGS (1)
  1. BACLOFEN. [Suspect]
     Active Substance: BACLOFEN
     Indication: MUSCLE SPASTICITY
     Dosage: DF
     Route: 037

REACTIONS (22)
  - Hypertensive emergency [None]
  - Leukocytosis [None]
  - Shock [None]
  - Muscle spasms [None]
  - Hyperthermia [None]
  - No therapeutic response [None]
  - Renal failure [None]
  - Peripheral ischaemia [None]
  - Leg amputation [None]
  - Motor dysfunction [None]
  - Myoclonus [None]
  - Respiratory failure [None]
  - Drug withdrawal syndrome [None]
  - Myocardial infarction [None]
  - Anxiety [None]
  - Tachycardia [None]
  - Toxicologic test abnormal [None]
  - Dialysis [None]
  - Deep vein thrombosis [None]
  - Dyspnoea [None]
  - Confusional state [None]
  - Tachypnoea [None]
